FAERS Safety Report 14117056 (Version 1)
Quarter: 2017Q4

REPORT INFORMATION
  Report Type: Spontaneous
  Country: US (occurrence: US)
  Receive Date: 20171023
  Receipt Date: 20171023
  Transmission Date: 20180321
  Serious: No
  Sender: FDA-Public Use
  Company Number: US-PURDUE-USA-2017-0140683

PATIENT

DRUGS (5)
  1. OXYCONTIN [Suspect]
     Active Substance: OXYCODONE HYDROCHLORIDE
     Indication: PRODUCT USED FOR UNKNOWN INDICATION
     Dosage: UNK MG, UNK
     Route: 065
  2. LYRICA [Concomitant]
     Active Substance: PREGABALIN
     Dosage: 1200 MG, UNK
     Route: 065
     Dates: start: 201706
  3. ZONISAMIDE. [Concomitant]
     Active Substance: ZONISAMIDE
     Indication: BURNING SENSATION
  4. LYRICA [Concomitant]
     Active Substance: PREGABALIN
     Indication: SPINAL CORD INJURY
     Dosage: 400 MG, UNK
     Route: 065
  5. ZONISAMIDE. [Concomitant]
     Active Substance: ZONISAMIDE
     Indication: PAIN

REACTIONS (1)
  - Drug ineffective [Unknown]
